FAERS Safety Report 9098313 (Version 1)
Quarter: 2013Q1

REPORT INFORMATION
  Report Type: Spontaneous
  Country: FR (occurrence: FR)
  Receive Date: 20130213
  Receipt Date: 20130213
  Transmission Date: 20140127
  Serious: Yes (Hospitalization)
  Sender: FDA-Public Use
  Company Number: PHHY2013FR013306

PATIENT
  Age: 71 Year
  Sex: Female

DRUGS (9)
  1. NISISCO [Suspect]
     Indication: HYPERTENSION
     Dosage: UNK UKN, UNK
     Route: 048
  2. TERALITHE [Suspect]
     Dosage: 400 MG, UNK
     Route: 048
  3. OMEPRAZOLE [Concomitant]
  4. DAFALGAN [Concomitant]
  5. ENDOTELON [Concomitant]
  6. CACIT VIT D3 [Concomitant]
  7. TRILEPTAL [Concomitant]
  8. ALLOPURINOL [Concomitant]
  9. ARTOTEC [Concomitant]

REACTIONS (3)
  - Antipsychotic drug level increased [Recovered/Resolved]
  - Blood phosphorus decreased [Recovered/Resolved]
  - Hypercalcaemia [Recovered/Resolved]
